FAERS Safety Report 7270088-1 (Version None)
Quarter: 2011Q1

REPORT INFORMATION
  Report Type: 
  Country: None (occurrence: None)
  Receive Date: 20110125
  Receipt Date: 20110117
  Transmission Date: 20110831
  Serious: Yes (Hospitalization)
  Sender: FDA-Public Use
  Company Number: 1000018221

PATIENT
  Age: 89 Year
  Sex: Female

DRUGS (12)
  1. RAMIPRIL [Suspect]
     Indication: HYPERTENSION
     Dosage: ORAL
     Route: 048
     Dates: end: 20101207
  2. ESCITALOPRAM OXALATE [Concomitant]
  3. LASIX [Suspect]
     Indication: HYPERTENSION
     Dosage: ORAL
     Route: 048
  4. VIALEBEX (ALBUMIN) [Suspect]
     Indication: HYPOALBUMINAEMIA
     Dosage: INTRAVENOUS (NOT OTHERWISE SPECIFIED)
     Route: 042
     Dates: start: 20101208, end: 20101209
  5. COSOPT (DORZOLAMIDE HYDROCHLORIDE, TIMOLOL) (DORZOLAMIDE HYDROCHLORIDE [Concomitant]
  6. PRESERVISION LUTEIN EYE VITAMIN + MINERAL(ASCORBIC ACID, CUPRIC ACID, [Concomitant]
  7. VASTAREL (TRIMETAZIDINE HYDROCHLORIDE) (TRIMETAZIDINE HYDROCHLORIDE) [Concomitant]
  8. AMLODIPINE BESYLATE [Suspect]
     Indication: HYPERTENSION
     Dosage: 10 MG (10 MG,1 IN 1 D),ORAL
     Route: 048
     Dates: start: 20101118, end: 20101207
  9. REFRESH (POLYVINYL ALCOHOL, POVIDONE) (POLYVINYL ALCOHOL, POVIDONE) [Concomitant]
  10. CELLUVISC (CARMELLOSE SODIUM) (CARMELLOSE SODIUM) [Concomitant]
  11. NEBIVOLOL HCL [Suspect]
     Indication: HYPERTENSION
     Dosage: ORAL
     Route: 048
  12. BETAHISTINE (BETAHISTINE) (BETAHISTINE) [Concomitant]

REACTIONS (5)
  - BLOOD POTASSIUM DECREASED [None]
  - OEDEMA PERIPHERAL [None]
  - VASCULAR PURPURA [None]
  - ERYSIPELAS [None]
  - CARDIAC FAILURE [None]
